FAERS Safety Report 23571366 (Version 5)
Quarter: 2024Q4

REPORT INFORMATION
  Report Type: Spontaneous
  Country: US (occurrence: US)
  Receive Date: 20240227
  Receipt Date: 20241227
  Transmission Date: 20250114
  Serious: No
  Sender: BRISTOL-MYERS SQUIBB COMPANY
  Company Number: US-BRISTOL-MYERS SQUIBB COMPANY-2024-026736

PATIENT
  Age: 57 Year
  Sex: Female

DRUGS (6)
  1. LENALIDOMIDE [Suspect]
     Active Substance: LENALIDOMIDE
     Indication: Hypokalaemia
     Route: 048
  2. LENALIDOMIDE [Suspect]
     Active Substance: LENALIDOMIDE
     Indication: Plasma cell myeloma
     Route: 048
  3. LENALIDOMIDE [Suspect]
     Active Substance: LENALIDOMIDE
     Dosage: FREQUENCY: TAKE 1 CAPSULE BY MOUTH EVERY 24 HOURS ON DAYS 1-21, TAKE DAYS 22-28 OFF
     Route: 048
  4. VELCADE [Concomitant]
     Active Substance: BORTEZOMIB
     Indication: Product used for unknown indication
  5. DEXAMETHASONE [Concomitant]
     Active Substance: DEXAMETHASONE
     Indication: Product used for unknown indication
  6. ZOMETA [Concomitant]
     Active Substance: ZOLEDRONIC ACID
     Indication: Bone disorder

REACTIONS (6)
  - Product dose omission issue [Unknown]
  - Pain [Unknown]
  - Dry skin [Unknown]
  - Product prescribing issue [Unknown]
  - Inappropriate schedule of product administration [Unknown]
  - Product use issue [Unknown]
